FAERS Safety Report 9158235 (Version 1)
Quarter: 2013Q1

REPORT INFORMATION
  Report Type: Spontaneous
  Country: US (occurrence: US)
  Receive Date: 20130312
  Receipt Date: 20130312
  Transmission Date: 20140127
  Serious: No
  Sender: FDA-Public Use
  Company Number: US-009507513-1303USA003941

PATIENT
  Sex: Female

DRUGS (1)
  1. LOSARTAN POTASSIUM AND HYDROCHLOROTHIAZIDE TABLETS [Suspect]
     Route: 048

REACTIONS (3)
  - Hyperhidrosis [Unknown]
  - Hypertension [Unknown]
  - Dizziness [Unknown]
